FAERS Safety Report 19910942 (Version 1)
Quarter: 2021Q4

REPORT INFORMATION
  Report Type: Spontaneous
  Country: US (occurrence: US)
  Receive Date: 20211004
  Receipt Date: 20211004
  Transmission Date: 20220303
  Serious: No
  Sender: FDA-Public Use
  Company Number: US-AMGEN-USASP2021146979

PATIENT
  Age: 65 Year
  Sex: Female
  Weight: 45.35 kg

DRUGS (1)
  1. PROLIA [Suspect]
     Active Substance: DENOSUMAB
     Indication: Osteoporosis postmenopausal
     Dosage: UNK, UNK
     Route: 065
     Dates: start: 2010

REACTIONS (6)
  - COVID-19 [Unknown]
  - Hepatic enzyme increased [Unknown]
  - Insulin resistance [Unknown]
  - Illness [Unknown]
  - Influenza [Unknown]
  - Hypertension [Unknown]

NARRATIVE: CASE EVENT DATE: 20210701
